FAERS Safety Report 8827510 (Version 2)
Quarter: 2012Q4

REPORT INFORMATION
  Report Type: 
  Country: US (occurrence: US)
  Receive Date: 20121008
  Receipt Date: 20121119
  Transmission Date: 20130627
  Serious: Yes (Hospitalization)
  Sender: FDA-Public Use
  Company Number: US-BAYER-2012-103335

PATIENT
  Age: 23 Year
  Sex: Female
  Weight: 52.15 kg

DRUGS (2)
  1. YAZ [Suspect]
     Dosage: UNK
     Dates: start: 20081101, end: 201001
  2. YAZ [Suspect]
     Dosage: UNK
     Dates: start: 200909, end: 200911

REACTIONS (8)
  - Cholecystectomy [None]
  - Pain [None]
  - Injury [None]
  - General physical health deterioration [None]
  - Anxiety [None]
  - Anhedonia [None]
  - Emotional distress [None]
  - Pain [None]
